FAERS Safety Report 8478662-1 (Version None)
Quarter: 2012Q2

REPORT INFORMATION
  Report Type: 
  Country: None (occurrence: None)
  Receive Date: 20120621
  Receipt Date: 20120613
  Transmission Date: 20120825
  Serious: Yes (Hospitalization)
  Sender: FDA-Public Use
  Company Number: 2012SP031038

PATIENT
  Age: 49 Year
  Sex: Male
  Weight: 96 kg

DRUGS (8)
  1. COPEGUS [Suspect]
     Indication: HEPATITIS C
     Dosage: 1200 MG;QD
     Dates: start: 20120430, end: 20120606
  2. PEGASYS [Suspect]
     Indication: HEPATITIS C
     Dosage: 180 MCG;QW
     Dates: start: 20120430, end: 20120606
  3. LASIX [Concomitant]
  4. ALDACTONE [Concomitant]
  5. IXEL [Concomitant]
  6. VITAMIN D [Concomitant]
  7. VICTRELIS [Suspect]
     Indication: HEPATITIS C
     Dosage: 800 MG;TID
     Dates: start: 20120529, end: 20120606
  8. ABILIFY [Concomitant]

REACTIONS (3)
  - ASTHENIA [None]
  - VOMITING [None]
  - GENERAL PHYSICAL HEALTH DETERIORATION [None]
